FAERS Safety Report 13456465 (Version 2)
Quarter: 2017Q2

REPORT INFORMATION
  Report Type: Report from Study
  Country: None (occurrence: NL)
  Receive Date: 20170418
  Receipt Date: 20170512
  Transmission Date: 20170830
  Serious: Yes (Hospitalization)
  Sender: FDA-Public Use
  Company Number: NL-ABBVIE-17P-114-1908862-00

PATIENT
  Sex: Male

DRUGS (2)
  1. DUODOPA [Suspect]
     Active Substance: CARBIDOPA\LEVODOPA
     Indication: PARKINSON^S DISEASE
     Dosage: MD: 7.0, CD: 2.9, ED: 3.0, CND: 2.4 - 1.5
     Route: 050
     Dates: start: 20150130
  2. VITAMIN D3 [Concomitant]
     Active Substance: CHOLECALCIFEROL
     Indication: PRODUCT USED FOR UNKNOWN INDICATION

REACTIONS (6)
  - Sepsis [Unknown]
  - Pancreatitis [Unknown]
  - Cholecystitis [Unknown]
  - Renal failure [Unknown]
  - Cholangitis [Unknown]
  - Bile duct stone [Unknown]

NARRATIVE: CASE EVENT DATE: 2017
